FAERS Safety Report 7028653-2 (Version None)
Quarter: 2010Q4

REPORT INFORMATION
  Report Type: 
  Country: None (occurrence: None)
  Receive Date: 20101001
  Receipt Date: 20101001
  Transmission Date: 20110411
  Serious: Yes (Hospitalization)
  Sender: FDA-Public Use
  Company Number: None

PATIENT
  Age: 56 Year
  Sex: Female
  Weight: 79 kg

DRUGS (7)
  1. BYETTA [Suspect]
     Indication: TYPE 2 DIABETES MELLITUS
     Dosage: UNKNOWN UNKNOWN SQ
     Route: 058
     Dates: start: 20100201, end: 20100825
  2. NOVOLOG [Concomitant]
  3. LANTUS [Concomitant]
  4. PREVACID [Concomitant]
  5. M.V.I. [Concomitant]
  6. ACTOS [Concomitant]
  7. METFORMIN HCL [Concomitant]

REACTIONS (8)
  - BILIARY TRACT DISORDER [None]
  - CHOLESTASIS [None]
  - COUGH [None]
  - HAEMATOCHEZIA [None]
  - HEPATIC FAILURE [None]
  - HEPATIC NECROSIS [None]
  - IDIOSYNCRATIC DRUG REACTION [None]
  - PANCREATITIS [None]
